FAERS Safety Report 12391684 (Version 2)
Quarter: 2016Q2

REPORT INFORMATION
  Report Type: Spontaneous
  Country: CN (occurrence: CN)
  Receive Date: 20160522
  Receipt Date: 20160525
  Transmission Date: 20160815
  Serious: Yes (Hospitalization)
  Sender: FDA-Public Use
  Company Number: PHHY2016CN061252

PATIENT
  Age: 42 Year
  Sex: Male
  Weight: 70 kg

DRUGS (3)
  1. KANG LI XING [Concomitant]
     Indication: PRODUCT USED FOR UNKNOWN INDICATION
     Route: 048
  2. UBENIMEX [Concomitant]
     Active Substance: UBENIMEX
     Indication: PRODUCT USED FOR UNKNOWN INDICATION
     Route: 048
  3. NILOTINIB [Suspect]
     Active Substance: NILOTINIB
     Indication: CHRONIC MYELOID LEUKAEMIA
     Dosage: 400 MG, BID
     Route: 048
     Dates: start: 20151008, end: 20160105

REACTIONS (5)
  - Lung infection [Unknown]
  - Blast crisis in myelogenous leukaemia [Recovering/Resolving]
  - Splenic rupture [Unknown]
  - Abdominal pain [Unknown]
  - Pyrexia [Unknown]

NARRATIVE: CASE EVENT DATE: 201601
